FAERS Safety Report 16823279 (Version 3)
Quarter: 2020Q3

REPORT INFORMATION
  Report Type: Report from Study
  Country: US (occurrence: US)
  Receive Date: 20190918
  Receipt Date: 20200813
  Transmission Date: 20201102
  Serious: Yes (Life-Threatening, Hospitalization, Other)
  Sender: FDA-Public Use
  Company Number: US-BRISTOL-MYERS SQUIBB COMPANY-BMS-2019-089459

PATIENT
  Sex: Male
  Weight: 104.32 kg

DRUGS (1)
  1. APIXABAN [Suspect]
     Active Substance: APIXABAN
     Indication: EMBOLISM VENOUS
     Dosage: UNK
     Route: 048
     Dates: start: 1996, end: 202007

REACTIONS (13)
  - Prostate cancer [Unknown]
  - Cataract [Unknown]
  - Thrombosis [Unknown]
  - Pancreatic carcinoma [Unknown]
  - Lung neoplasm malignant [Unknown]
  - Anaemia [Unknown]
  - Dehydration [Unknown]
  - Sleep apnoea syndrome [Unknown]
  - Weight decreased [Unknown]
  - Pulmonary thrombosis [Unknown]
  - Drug ineffective [Unknown]
  - Respiratory failure [Unknown]
  - Hip fracture [Unknown]

NARRATIVE: CASE EVENT DATE: 2019
